FAERS Safety Report 7240787-6 (Version None)
Quarter: 2011Q1

REPORT INFORMATION
  Report Type: 
  Country: None (occurrence: None)
  Receive Date: 20110124
  Receipt Date: 20110111
  Transmission Date: 20110831
  Serious: Yes (Hospitalization, Other)
  Sender: FDA-Public Use
  Company Number: US-PFIZER INC-HQ2065225APR2002

PATIENT
  Age: 19 Year
  Sex: Female

DRUGS (9)
  1. KETOROLAC [Suspect]
     Indication: HEADACHE
     Route: 048
  2. METOCLOPRAMIDE HCL [Suspect]
     Indication: HEADACHE
     Route: 048
  3. CEFTRIAXONE [Suspect]
     Indication: URINARY TRACT INFECTION
     Route: 048
  4. CEFTRIAXONE [Suspect]
     Indication: HEADACHE
  5. IBUPROFEN [Suspect]
     Indication: HEADACHE
     Route: 048
  6. CEFTRIAXONE [Suspect]
     Indication: NAUSEA
  7. CIPROFLOXACIN [Suspect]
     Indication: URINARY TRACT INFECTION
     Route: 042
  8. CEFTRIAXONE [Suspect]
     Indication: VOMITING
  9. CEFTRIAXONE [Suspect]
     Indication: PYREXIA

REACTIONS (3)
  - STEVENS-JOHNSON SYNDROME [None]
  - HEPATITIS CHOLESTATIC [None]
  - DRUG INEFFECTIVE [None]
